FAERS Safety Report 7542237-9 (Version None)
Quarter: 2011Q2

REPORT INFORMATION
  Report Type: 
  Country: None (occurrence: None)
  Receive Date: 20110606
  Receipt Date: 20110523
  Transmission Date: 20111010
  Serious: Yes (Other)
  Sender: FDA-Public Use
  Company Number: 2011MA006517

PATIENT
  Age: 58 Year
  Sex: Male

DRUGS (1)
  1. RAMIPRIL [Suspect]
     Dates: start: 20110415

REACTIONS (4)
  - EAR, NOSE AND THROAT EXAMINATION ABNORMAL [None]
  - COUGH [None]
  - EYE DISORDER [None]
  - SKIN DISORDER [None]
